FAERS Safety Report 10147008 (Version 1)
Quarter: 2014Q2

REPORT INFORMATION
  Report Type: Spontaneous
  Country: US (occurrence: None)
  Receive Date: 20140430
  Receipt Date: 20140430
  Transmission Date: 20141212
  Serious: Yes (Hospitalization)
  Sender: FDA-Public Use
  Company Number: None

PATIENT
  Age: 77 Year
  Sex: Female

DRUGS (1)
  1. CLOZAPINE [Suspect]
     Indication: WRONG DRUG ADMINISTERED
     Dosage: 100 MG TWO TIMES DAILY PO
     Route: 048
     Dates: start: 20140116

REACTIONS (4)
  - Unresponsive to stimuli [None]
  - Mental status changes [None]
  - Wrong drug administered [None]
  - Overdose [None]
